FAERS Safety Report 12329532 (Version 1)
Quarter: 2016Q2

REPORT INFORMATION
  Report Type: Spontaneous
  Country: AU (occurrence: AU)
  Receive Date: 20160503
  Receipt Date: 20160503
  Transmission Date: 20160815
  Serious: Yes (Hospitalization, Other)
  Sender: FDA-Public Use
  Company Number: AU-PFIZER INC-2016234960

PATIENT
  Age: 71 Year
  Sex: Female

DRUGS (1)
  1. XELJANZ [Suspect]
     Active Substance: TOFACITINIB CITRATE
     Indication: RHEUMATOID ARTHRITIS
     Dosage: UNK

REACTIONS (7)
  - Fracture [Unknown]
  - Rheumatoid arthritis [Unknown]
  - Enterococcal infection [Unknown]
  - Cholelithiasis [Unknown]
  - Condition aggravated [Unknown]
  - Vasculitis [Unknown]
  - Hepatic enzyme increased [Recovering/Resolving]
